FAERS Safety Report 16534469 (Version 2)
Quarter: 2019Q4

REPORT INFORMATION
  Report Type: Spontaneous
  Country: ES (occurrence: ES)
  Receive Date: 20190705
  Receipt Date: 20191029
  Transmission Date: 20200122
  Serious: Yes (Death)
  Sender: FDA-Public Use
  Company Number: ES-B.I. PHARMACEUTICALS,INC./RIDGEFIELD-2007-ES-00078ES

PATIENT
  Age: 88 Year
  Sex: Male
  Weight: 66 kg

DRUGS (7)
  1. SPIRIVA [Suspect]
     Active Substance: TIOTROPIUM BROMIDE MONOHYDRATE
     Indication: CHRONIC OBSTRUCTIVE PULMONARY DISEASE
     Dosage: DOSE FREQUENCY UNIT: 18 MICROG-MICROGRAMS // DOSE PER APPLICATION: 18 MICROG-MICROGRAMS// NUMBER...
     Route: 055
     Dates: start: 200703, end: 20070314
  2. OMEPRAZOL [OMEPRAZOLE] [Concomitant]
     Active Substance: OMEPRAZOLE
     Indication: PRODUCT USED FOR UNKNOWN INDICATION
     Dosage: DOSE FREQUENCY UNIT: 20 MG-MILLIGRAMS // DOSE PER APPLICATION: 20 MG-MILLIGRAMS // NUMBER OF INTAKES
     Route: 048
     Dates: start: 200412, end: 20070314
  3. PRISDAL [CITALOPRAM HYDROBROMIDE] [Suspect]
     Active Substance: CITALOPRAM HYDROBROMIDE
     Dosage: DOSE FREQUENCY UNIT: 10 MG-MILLIGRAMS // DOSE PER APPLICATION: 10 MG-MILLIGRAMS // NUMBER OF INTAKES
     Route: 048
     Dates: start: 20070302, end: 20070305
  4. SEREVENT DISKUS [Concomitant]
     Active Substance: SALMETEROL XINAFOATE
     Indication: CHRONIC OBSTRUCTIVE PULMONARY DISEASE
     Dosage: SUSPENSION FOR INHALATION IN PRESSURIZED CONTAINER
     Route: 055
     Dates: start: 200412, end: 20070314
  5. ORFIDAL [Concomitant]
     Active Substance: LORAZEPAM
     Indication: INSOMNIA
     Dosage: DOSE FREQUENCY UNIT: 1 MG-MILLIGRAMS // DOSE PER APPLICATION: 1 MG-MILLIGRAMS // NUMBER OF INTAKES
     Route: 048
     Dates: start: 200503, end: 20050314
  6. PRISDAL [CITALOPRAM HYDROBROMIDE] [Suspect]
     Active Substance: CITALOPRAM HYDROBROMIDE
     Indication: DEPRESSION
     Dosage: DOSE FREQUENCY UNIT: 20 MG-MILLIGRAMS // DOSE PER APPLICATION: 20 MG-MILLIGRAMS // NUMBER OF INTAKES
     Route: 048
     Dates: start: 20070306, end: 20070314
  7. DACORTIN [Concomitant]
     Active Substance: PREDNISONE
     Indication: POLYMYALGIA RHEUMATICA
     Dosage: DOSE FREQUENCY UNIT: 5 MG-MILLIGRAMS // DOSE PER APPLICATION: 2.5 MG-MILLIGRAMS // NUMBER OF INTAKES
     Route: 048
     Dates: start: 200305, end: 20070314

REACTIONS (1)
  - Completed suicide [Fatal]

NARRATIVE: CASE EVENT DATE: 20070314
